FAERS Safety Report 12609889 (Version 1)
Quarter: 2016Q3

REPORT INFORMATION
  Report Type: Spontaneous
  Country: US (occurrence: US)
  Receive Date: 20160801
  Receipt Date: 20160801
  Transmission Date: 20161109
  Serious: No
  Sender: FDA-Public Use
  Company Number: US-BAYER-2016-148088

PATIENT
  Sex: Female

DRUGS (2)
  1. MIRALAX [Suspect]
     Active Substance: POLYETHYLENE GLYCOL 3350
     Dosage: UNK
  2. PHAZYME [Concomitant]
     Active Substance: DIMETHICONE 410
     Dosage: 250 MG, UNK

REACTIONS (2)
  - Discomfort [None]
  - Flatulence [None]
